FAERS Safety Report 15130382 (Version 3)
Quarter: 2018Q3

REPORT INFORMATION
  Report Type: Spontaneous
  Country: JP (occurrence: JP)
  Receive Date: 20180711
  Receipt Date: 20180813
  Transmission Date: 20181010
  Serious: Yes (Death)
  Sender: FDA-Public Use
  Company Number: JP-PFIZER INC-2018279315

PATIENT

DRUGS (2)
  1. ANCARON [Suspect]
     Active Substance: AMIODARONE HYDROCHLORIDE
     Dosage: UNK
     Route: 065
  2. ANCARON [Suspect]
     Active Substance: AMIODARONE HYDROCHLORIDE
     Dosage: UNK

REACTIONS (1)
  - Lung disorder [Fatal]
